FAERS Safety Report 15282758 (Version 1)
Quarter: 2018Q4

REPORT INFORMATION
  Report Type: Spontaneous
  Country: CL (occurrence: CL)
  Receive Date: 20180816
  Receipt Date: 20180816
  Transmission Date: 20190204
  Serious: Yes (Other)
  Sender: FDA-Public Use
  Company Number: CL-MERCK KGAA-2053789

PATIENT
  Sex: Female

DRUGS (4)
  1. TIBOLONA [Suspect]
     Active Substance: TIBOLONE
  2. NOVOTHYROX [Suspect]
     Active Substance: LEVOTHYROXINE SODIUM
  3. NOVOTHYROX [Suspect]
     Active Substance: LEVOTHYROXINE SODIUM
     Indication: HYPOTHYROIDISM
  4. NOVOTHYROX [Suspect]
     Active Substance: LEVOTHYROXINE SODIUM

REACTIONS (6)
  - Premature menopause [None]
  - Spinal osteoarthritis [None]
  - Fibromyalgia [None]
  - Weight increased [Not Recovered/Not Resolved]
  - Mood altered [None]
  - Helicobacter infection [None]
